FAERS Safety Report 7935772-2 (Version None)
Quarter: 2011Q4

REPORT INFORMATION
  Report Type: 
  Country: None (occurrence: None)
  Receive Date: 20111123
  Receipt Date: 20111115
  Transmission Date: 20120403
  Serious: Yes (Hospitalization, Other)
  Sender: FDA-Public Use
  Company Number: PHEH2011US07672

PATIENT
  Sex: Male
  Weight: 26.3 kg

DRUGS (5)
  1. FOLIC ACID [Concomitant]
  2. EXJADE [Suspect]
     Indication: IRON METABOLISM DISORDER
  3. EXJADE [Suspect]
     Indication: SICKLE CELL ANAEMIA
     Dosage: 750 MG, DAILY
     Route: 048
     Dates: start: 20080303
  4. PENICILLIN V POTASSIUM [Concomitant]
  5. HYDROXYUREA [Concomitant]

REACTIONS (1)
  - PNEUMONIA [None]
